FAERS Safety Report 18060821 (Version 2)
Quarter: 2021Q2

REPORT INFORMATION
  Report Type: Spontaneous
  Country: US (occurrence: US)
  Receive Date: 20200723
  Receipt Date: 20210408
  Transmission Date: 20210717
  Serious: Yes (Other)
  Sender: FDA-Public Use
  Company Number: US-GLAXOSMITHKLINE-US2020139434

PATIENT
  Sex: Male

DRUGS (3)
  1. ZANTAC [Suspect]
     Active Substance: RANITIDINE HYDROCHLORIDE
     Route: 065
     Dates: start: 19950115, end: 20190115
  2. ZANTAC [Suspect]
     Active Substance: RANITIDINE HYDROCHLORIDE
     Indication: GASTROOESOPHAGEAL REFLUX DISEASE
     Dosage: DAILY BUT SOMETIMES A COUPLE OF MONTHS OF NON?USE
     Route: 065
     Dates: start: 199206, end: 201901
  3. ZANTAC [Suspect]
     Active Substance: RANITIDINE HYDROCHLORIDE
     Indication: GASTROOESOPHAGEAL REFLUX DISEASE
     Dosage: DAILY BUT SOMETIMES A COUPLE OF MONTHS OF NON?USE
     Route: 065
     Dates: start: 199206, end: 201901

REACTIONS (3)
  - Testis cancer [Unknown]
  - Ureteric cancer [Unknown]
  - Thyroid cancer [Unknown]
